FAERS Safety Report 10530451 (Version 2)
Quarter: 2014Q4

REPORT INFORMATION
  Report Type: Spontaneous
  Country: FR (occurrence: None)
  Receive Date: 20141017
  Receipt Date: 20141031
  Transmission Date: 20150528
  Serious: Yes (Hospitalization)
  Sender: FDA-Public Use
  Company Number: 2570748

PATIENT
  Age: 61 Year
  Sex: Male

DRUGS (10)
  1. IFOSFAMIDE. [Suspect]
     Active Substance: IFOSFAMIDE
     Indication: LYMPHOMA
     Dates: start: 20140826, end: 20140827
  2. ETOPOSIDE. [Suspect]
     Active Substance: ETOPOSIDE
     Indication: LYMPHOMA
     Dosage: DAY, NOT OTHERWISE SPECIFIED
     Route: 042
     Dates: start: 20140825, end: 20140827
  3. FUROSEMIDE. [Suspect]
     Active Substance: FUROSEMIDE
     Indication: OEDEMA PERIPHERAL
     Route: 048
     Dates: start: 20140810, end: 20140830
  4. ACICLOVIR [Concomitant]
     Active Substance: ACYCLOVIR
  5. MESNA. [Concomitant]
     Active Substance: MESNA
  6. ONDANSETRON [Concomitant]
     Active Substance: ONDANSETRON
  7. VALACICLOVIR [Concomitant]
     Active Substance: VALACYCLOVIR HYDROCHLORIDE
  8. PREGABALIN. [Suspect]
     Active Substance: PREGABALIN
     Indication: PAIN
     Route: 048
     Dates: start: 20140825, end: 20140827
  9. METHYLPREDNISOLONE. [Concomitant]
     Active Substance: METHYLPREDNISOLONE
  10. CARBOPLATIN. [Suspect]
     Active Substance: CARBOPLATIN
     Indication: LYMPHOMA
     Route: 042
     Dates: start: 20140826, end: 20140826

REACTIONS (15)
  - Hyperbilirubinaemia [None]
  - Drug hypersensitivity [None]
  - Renal failure [None]
  - Gamma-glutamyltransferase increased [None]
  - Pain [None]
  - Hypomagnesaemia [None]
  - Encephalopathy [None]
  - Oedema peripheral [None]
  - Transaminases increased [None]
  - Skin ulcer [None]
  - Tonsillectomy [None]
  - Hepatotoxicity [None]
  - Blood alkaline phosphatase increased [None]
  - Paraesthesia [None]
  - Hypokalaemia [None]

NARRATIVE: CASE EVENT DATE: 20140827
